FAERS Safety Report 5691139-1 (Version None)
Quarter: 2008Q2

REPORT INFORMATION
  Report Type: 
  Country: None (occurrence: None)
  Receive Date: 20080402
  Receipt Date: 20080325
  Transmission Date: 20081010
  Serious: Yes (Other)
  Sender: FDA-Public Use
  Company Number: US-RANBAXY-2008US-13394

PATIENT

DRUGS (1)
  1. CLINDAMYCIN HYDROCHLORIDE [Suspect]
     Indication: DRUG USE FOR UNKNOWN INDICATION
     Dosage: 300 MG, UNK
     Route: 048
     Dates: end: 20080214

REACTIONS (16)
  - ANGER [None]
  - ANXIETY [None]
  - APHONIA [None]
  - COUGH [None]
  - DEPRESSION [None]
  - DYSPHAGIA [None]
  - DYSPNOEA [None]
  - FATIGUE [None]
  - FEAR [None]
  - FOREIGN BODY TRAUMA [None]
  - FRUSTRATION [None]
  - HAEMOPTYSIS [None]
  - LARYNGOSPASM [None]
  - NIGHTMARE [None]
  - PAIN [None]
  - PHARYNGEAL OEDEMA [None]
